FAERS Safety Report 17187768 (Version 2)
Quarter: 2020Q1

REPORT INFORMATION
  Report Type: Spontaneous
  Country: GB (occurrence: GB)
  Receive Date: 20191221
  Receipt Date: 20200131
  Transmission Date: 20200409
  Serious: Yes (Death)
  Sender: FDA-Public Use
  Company Number: GB-CELLTRION INC.-2019GB027485

PATIENT

DRUGS (10)
  1. PREDNISOLONE. [Suspect]
     Active Substance: PREDNISOLONE
     Indication: NON-HODGKIN^S LYMPHOMA
  2. CYCLOPHOSPHAMIDE. [Suspect]
     Active Substance: CYCLOPHOSPHAMIDE
     Indication: NON-HODGKIN^S LYMPHOMA UNSPECIFIED HISTOLOGY AGGRESSIVE
     Dosage: 400 MG/M2 ON DAY 1 OF EACH CYCLE (PART OF R-MINICHOP REGIMEN)
     Route: 065
  3. CYCLOPHOSPHAMIDE. [Suspect]
     Active Substance: CYCLOPHOSPHAMIDE
     Indication: NON-HODGKIN^S LYMPHOMA
  4. PREDNISOLONE. [Suspect]
     Active Substance: PREDNISOLONE
     Indication: NON-HODGKIN^S LYMPHOMA UNSPECIFIED HISTOLOGY AGGRESSIVE
     Dosage: 40 MG/M2 ON DAYS 1-5 (PART OF R-MINICHOP REGIMEN)
     Route: 065
  5. RITUXIMAB (UNKNOWN) [Suspect]
     Active Substance: RITUXIMAB
     Indication: NON-HODGKIN^S LYMPHOMA UNSPECIFIED HISTOLOGY AGGRESSIVE
     Dosage: 375 MG/M2 ON DAY 1 OF EACH CYCLE (PART OF R-MINICHOP REGIMEN)
     Route: 065
  6. VINCRISTINE [Suspect]
     Active Substance: VINCRISTINE
     Indication: NON-HODGKIN^S LYMPHOMA UNSPECIFIED HISTOLOGY AGGRESSIVE
     Dosage: 1 MG/M2 ON DAY 1 OF EACH CYCLE (PART OF R-MINICHOP REGIMEN)
     Route: 065
  7. VINCRISTINE [Suspect]
     Active Substance: VINCRISTINE
     Indication: NON-HODGKIN^S LYMPHOMA
  8. DOXORUBICIN [Suspect]
     Active Substance: DOXORUBICIN
     Indication: NON-HODGKIN^S LYMPHOMA UNSPECIFIED HISTOLOGY AGGRESSIVE
     Dosage: 25 MG/M2 ON DAY 1 OF EACH CYCLE (PART OF R-MINICHOP REGIMEN)
     Route: 065
  9. DOXORUBICIN [Suspect]
     Active Substance: DOXORUBICIN
     Indication: NON-HODGKIN^S LYMPHOMA
  10. RITUXIMAB (UNKNOWN) [Suspect]
     Active Substance: RITUXIMAB
     Indication: NON-HODGKIN^S LYMPHOMA

REACTIONS (1)
  - Gastrointestinal haemorrhage [Fatal]
